FAERS Safety Report 7705718-0 (Version None)
Quarter: 2011Q3

REPORT INFORMATION
  Report Type: 
  Country: None (occurrence: None)
  Receive Date: 20110824
  Receipt Date: 20110816
  Transmission Date: 20111222
  Serious: Yes (Death, Other)
  Sender: FDA-Public Use
  Company Number: US-BAYER-201041842NA

PATIENT
  Age: 74 Year
  Sex: Female
  Weight: 57 kg

DRUGS (16)
  1. TRASYLOL [Suspect]
     Indication: CORONARY ARTERY BYPASS
  2. HEPARIN [Concomitant]
     Dosage: 200 IU, UNK
     Route: 042
  3. TRASYLOL [Suspect]
     Indication: AORTIC VALVE REPLACEMENT
  4. AMBIEN [Concomitant]
  5. CRESTOR [Concomitant]
  6. SOLU-MEDROL [Concomitant]
     Dosage: 1 G, UNK
     Route: 042
  7. DIOVAN [Concomitant]
  8. PENTOTHAL [Concomitant]
  9. VERSED [Concomitant]
  10. TRASYLOL [Suspect]
     Indication: STERNOTOMY
     Dosage: 200 ML, UNK
     Route: 042
     Dates: start: 20071005, end: 20071005
  11. LASIX [Concomitant]
  12. TOPROL-XL [Concomitant]
  13. ACETYLSALICYLIC ACID SRT [Concomitant]
  14. NIMBEX [Concomitant]
  15. PROTAMINE [Concomitant]
     Dosage: 300
     Route: 042
  16. SUCCINYLCHOLINE CHLORIDE [Concomitant]

REACTIONS (13)
  - RENAL FAILURE [None]
  - RENAL INJURY [None]
  - CARDIAC DISORDER [None]
  - DEATH [None]
  - MULTI-ORGAN FAILURE [None]
  - RENAL IMPAIRMENT [None]
  - EMOTIONAL DISTRESS [None]
  - UNEVALUABLE EVENT [None]
  - PAIN [None]
  - ANXIETY [None]
  - FEAR [None]
  - RESPIRATORY FAILURE [None]
  - STRESS [None]
